FAERS Safety Report 7899931-X (Version None)
Quarter: 2011Q4

REPORT INFORMATION
  Report Type: 
  Country: None (occurrence: None)
  Receive Date: 20111107
  Receipt Date: 20111010
  Transmission Date: 20120403
  Serious: Yes (Other)
  Sender: FDA-Public Use
  Company Number: US-AMGEN-USASP2010010564

PATIENT
  Age: 76 Year
  Sex: Male

DRUGS (2)
  1. ENBREL [Suspect]
     Indication: PSORIASIS
     Dosage: 25 MG, QWK
     Dates: start: 20050523
  2. ENBREL [Suspect]
     Dosage: UNK,UNK, UNK

REACTIONS (11)
  - THERMAL BURN [None]
  - NERVE INJURY [None]
  - IMPAIRED HEALING [None]
  - PSORIASIS [None]
  - SEASONAL ALLERGY [None]
  - LACERATION [None]
  - SKIN FRAGILITY [None]
  - PRURITUS [None]
  - NASOPHARYNGITIS [None]
  - THERAPEUTIC RESPONSE DELAYED [None]
  - INSOMNIA [None]
